FAERS Safety Report 10696699 (Version 1)
Quarter: 2015Q1

REPORT INFORMATION
  Report Type: Spontaneous
  Country: US (occurrence: US)
  Receive Date: 20150107
  Receipt Date: 20150107
  Transmission Date: 20150721
  Serious: No
  Sender: FDA-Public Use
  Company Number: US-009507513-1501USA000751

PATIENT
  Age: 24 Year
  Sex: Female
  Weight: 58.96 kg

DRUGS (1)
  1. IMPLANON [Suspect]
     Active Substance: ETONOGESTREL
     Dosage: UNK
     Route: 059
     Dates: start: 20140306

REACTIONS (9)
  - Metrorrhagia [Unknown]
  - Headache [Unknown]
  - Epistaxis [Unknown]
  - Unintended pregnancy [Unknown]
  - Device kink [Unknown]
  - Device breakage [Unknown]
  - Nipple disorder [Unknown]
  - Feeling abnormal [Unknown]
  - Gastrointestinal disorder [Unknown]

NARRATIVE: CASE EVENT DATE: 20141221
